FAERS Safety Report 10203492 (Version 2)
Quarter: 2014Q2

REPORT INFORMATION
  Report Type: Report from Study
  Country: CA (occurrence: None)
  Receive Date: 20140523
  Receipt Date: 20140529
  Transmission Date: 20141212
  Serious: Yes (Hospitalization, Other)
  Sender: FDA-Public Use
  Company Number: CA-015748

PATIENT
  Age: 87 Year
  Sex: Male

DRUGS (14)
  1. FIRMAGON/01764801/ (FIRMAGON) 80 MG [Suspect]
     Indication: PROSTATE CANCER
     Dosage: 1X/MONTH ,
     Route: 058
     Dates: start: 20140122, end: 2014
  2. AVODART [Concomitant]
  3. SPIRIVA [Concomitant]
  4. APO FUROSEMIDE [Concomitant]
  5. COUMADIN/00014802/ [Concomitant]
  6. BICALUTAMIDE [Concomitant]
  7. MAVIX [Concomitant]
  8. ADVAIR [Concomitant]
  9. CANESTEN. [Concomitant]
  10. BACTROBAN /00753901/ [Concomitant]
  11. DURAGESIC /00070401/ [Concomitant]
  12. ATIVAN [Concomitant]
  13. VENTOLIN /00139502/ [Concomitant]
  14. DULCOLAX /00362801/ [Concomitant]

REACTIONS (8)
  - Asthenia [None]
  - Pain [None]
  - Decreased appetite [None]
  - Hot flush [None]
  - Constipation [None]
  - Chills [None]
  - Activities of daily living impaired [None]
  - Metastasis [None]
